FAERS Safety Report 4701544-5 (Version None)
Quarter: 2005Q2

REPORT INFORMATION
  Report Type: 
  Country: None (occurrence: None)
  Receive Date: 20050627
  Receipt Date: 20050613
  Transmission Date: 20051028
  Serious: Yes (Death, Life-Threatening, Hospitalization, Disabling)
  Sender: FDA-Public Use
  Company Number: 2005-01088

PATIENT
  Age: 48 Year
  Sex: Male
  Weight: 56 kg

DRUGS (2)
  1. VELCADE [Suspect]
     Indication: MULTIPLE MYELOMA
     Dosage: 1.60 MG 2/WEEK INTRAVENOUS
     Route: 042
     Dates: start: 20050305, end: 20050423
  2. DEXAMETHASONE [Suspect]
     Indication: MULTIPLE MYELOMA
     Dosage: 10.00 MG
     Dates: start: 20050423, end: 20050424

REACTIONS (13)
  - ALANINE AMINOTRANSFERASE INCREASED [None]
  - ANXIETY [None]
  - ASPARTATE AMINOTRANSFERASE INCREASED [None]
  - CARDIAC ARREST [None]
  - DIPLOPIA [None]
  - DYSPHAGIA [None]
  - HEADACHE [None]
  - INSOMNIA [None]
  - NEUROPATHIC PAIN [None]
  - PERIPHERAL SENSORY NEUROPATHY [None]
  - SENSORY LOSS [None]
  - THROMBOCYTOPENIA [None]
  - VITH NERVE DISORDER [None]
